FAERS Safety Report 9892158 (Version 1)
Quarter: 2014Q1

REPORT INFORMATION
  Report Type: Spontaneous
  Country: FR (occurrence: FR)
  Receive Date: 20140212
  Receipt Date: 20140212
  Transmission Date: 20141002
  Serious: Yes (Other)
  Sender: FDA-Public Use
  Company Number: FR-TEVA-461598ISR

PATIENT
  Age: 67 Year
  Sex: Female

DRUGS (2)
  1. COTRIMOXAZOLE RATIOPHARM 800MG/160MG [Suspect]
     Indication: PROPHYLACTIC CHEMOTHERAPY
     Dosage: .4286 TABLET DAILY;
     Route: 048
     Dates: start: 201309
  2. LEDERFOLINE [Concomitant]

REACTIONS (1)
  - Choking [Recovered/Resolved]
